FAERS Safety Report 19641672 (Version 1)
Quarter: 2021Q3

REPORT INFORMATION
  Report Type: Spontaneous
  Country: US (occurrence: US)
  Receive Date: 20210730
  Receipt Date: 20210730
  Transmission Date: 20211014
  Serious: No
  Sender: FDA-Public Use
  Company Number: US-DENTSPLY PHARMACEUTICAL-2020SCDP000436

PATIENT

DRUGS (2)
  1. LIDOCAINE HYDROCHLORIDE AND EPINEPHRINE BITARTRATE [Suspect]
     Active Substance: EPINEPHRINE BITARTRATE\LIDOCAINE HYDROCHLORIDE
     Indication: LOCAL ANAESTHESIA
     Dosage: A CORTICOSTEROID (TRIAMCINOLONE ACETONIDE) COMBINED WITH EITHER LIDOCAINE WITH EPINEPHRINE 1:100,000
  2. TRIAMCINOLONE ACETONIDE. [Suspect]
     Active Substance: TRIAMCINOLONE ACETONIDE
     Indication: LOCAL ANAESTHESIA
     Dosage: A CORTICOSTEROID (TRIAMCINOLONE ACETONIDE) COMBINED WITH EITHER LIDOCAINE WITH EPINEPHRINE 1:100,000

REACTIONS (1)
  - Injection site pain [Unknown]
